FAERS Safety Report 7176275-5 (Version None)
Quarter: 2010Q4

REPORT INFORMATION
  Report Type: 
  Country: None (occurrence: None)
  Receive Date: 20101220
  Receipt Date: 20101205
  Transmission Date: 20110411
  Serious: Yes (Other)
  Sender: FDA-Public Use
  Company Number: US-JNJFOC-20101203590

PATIENT
  Sex: Male

DRUGS (2)
  1. RISPERIDONE [Suspect]
     Indication: PRODUCT USED FOR UNKNOWN INDICATION
     Route: 048
  2. RISPERDAL CONSTA [Suspect]
     Indication: ILL-DEFINED DISORDER
     Route: 030

REACTIONS (7)
  - FEELING ABNORMAL [None]
  - HALLUCINATION, AUDITORY [None]
  - MALAISE [None]
  - NERVOUS SYSTEM DISORDER [None]
  - TEARFULNESS [None]
  - THINKING ABNORMAL [None]
  - TINNITUS [None]
